FAERS Safety Report 6342030-9 (Version None)
Quarter: 2009Q3

REPORT INFORMATION
  Report Type: 
  Country: None (occurrence: None)
  Receive Date: 20090904
  Receipt Date: 20090827
  Transmission Date: 20100115
  Serious: Yes (Hospitalization)
  Sender: FDA-Public Use
  Company Number: GB-ABBOTT-09P-167-0593902-00

PATIENT
  Age: 25 Year
  Sex: Male

DRUGS (3)
  1. EPILIM TABLETS [Suspect]
     Indication: AFFECTIVE DISORDER
     Route: 048
  2. EPILIM TABLETS [Suspect]
     Indication: CONVULSION PROPHYLAXIS
  3. CLOZAPINE [Concomitant]
     Indication: AFFECTIVE DISORDER
     Dosage: HIGH DOSE
     Route: 065

REACTIONS (1)
  - DRUG WITHDRAWAL CONVULSIONS [None]
